FAERS Safety Report 11031646 (Version 1)
Quarter: 2015Q2

REPORT INFORMATION
  Report Type: Spontaneous
  Country: US (occurrence: US)
  Receive Date: 20150415
  Receipt Date: 20150415
  Transmission Date: 20150821
  Serious: No
  Sender: FDA-Public Use
  Company Number: US-SA-2015SA010271

PATIENT
  Age: 76 Year
  Sex: Male
  Weight: 105.23 kg

DRUGS (16)
  1. DIOVAN HCT [Concomitant]
     Active Substance: HYDROCHLOROTHIAZIDE\VALSARTAN
     Route: 048
     Dates: start: 20140908
  2. GLIMEPIRIDE. [Concomitant]
     Active Substance: GLIMEPIRIDE
     Dosage: STRENGTH: 2 MG
     Route: 048
     Dates: start: 20140519
  3. DIOVAN HCT [Concomitant]
     Active Substance: HYDROCHLOROTHIAZIDE\VALSARTAN
     Dosage: 160-25 MG
     Route: 048
     Dates: start: 20090219, end: 20140908
  4. N-ACETYLCYSTEINE [Concomitant]
     Active Substance: ACETYLCYSTEINE
     Dosage: STRENGTH: 600 MG CAPSULE
     Route: 048
     Dates: start: 20140527, end: 20140908
  5. REVATIO [Concomitant]
     Active Substance: SILDENAFIL CITRATE
  6. DEMEROL [Suspect]
     Active Substance: MEPERIDINE HYDROCHLORIDE
     Route: 048
  7. POTASSIUM CHLORIDE. [Concomitant]
     Active Substance: POTASSIUM CHLORIDE
     Dosage: STRENGTH: 8 MEQ
     Route: 048
     Dates: start: 20140519
  8. ZOLOFT [Concomitant]
     Active Substance: SERTRALINE HYDROCHLORIDE
     Dosage: STRENGTH: 50 MG
     Route: 048
     Dates: start: 20091102
  9. FUROSEMIDE. [Concomitant]
     Active Substance: FUROSEMIDE
     Dosage: STRENGTH: 40 MG
     Route: 048
     Dates: start: 20140519
  10. METOPROLOL SUCCINATE. [Concomitant]
     Active Substance: METOPROLOL SUCCINATE
     Dosage: STRENGTH: 100 MG 24 HR TABLET;DOSE: 1 T PO QAM; 1/2T PO QPM
     Route: 048
     Dates: start: 20091102
  11. SILDENAFIL. [Concomitant]
     Active Substance: SILDENAFIL
     Dosage: STRENGTH: 20 MG
     Route: 048
     Dates: start: 20140527
  12. EZETIMIBE. [Concomitant]
     Active Substance: EZETIMIBE
  13. PRILOSEC [Concomitant]
     Active Substance: OMEPRAZOLE MAGNESIUM
     Dosage: STRENGTH: 20 MG
     Route: 048
  14. WARFARIN [Concomitant]
     Active Substance: WARFARIN
     Dosage: STRENGTH: 5 MG
     Dates: start: 20091102
  15. CLONIDINE. [Suspect]
     Active Substance: CLONIDINE
     Route: 065
  16. N-ACETYLCYSTEINE [Concomitant]
     Active Substance: ACETYLCYSTEINE
     Dosage: STRENGTH: 600 MG CAPSULE
     Route: 048
     Dates: start: 20140908, end: 20140908

REACTIONS (1)
  - Drug hypersensitivity [Unknown]
